FAERS Safety Report 15042080 (Version 2)
Quarter: 2018Q3

REPORT INFORMATION
  Report Type: Spontaneous
  Country: US (occurrence: US)
  Receive Date: 20180621
  Receipt Date: 20180911
  Transmission Date: 20181010
  Serious: Yes (Other)
  Sender: FDA-Public Use
  Company Number: US-PFIZER INC-2018250929

PATIENT
  Age: 90 Year
  Sex: Female

DRUGS (1)
  1. XELJANZ XR [Suspect]
     Active Substance: TOFACITINIB CITRATE
     Dosage: 11 MG, UNK
     Dates: start: 20180523

REACTIONS (4)
  - Eye infection [Unknown]
  - Nasopharyngitis [Unknown]
  - Pneumonia [Unknown]
  - Immune system disorder [Unknown]
